APPROVED DRUG PRODUCT: NALBUPHINE HYDROCHLORIDE
Active Ingredient: NALBUPHINE HYDROCHLORIDE
Strength: 100MG/10ML (10MG/ML)
Dosage Form/Route: SOLUTION;INTRAMUSCULAR, INTRAVENOUS, SUBCUTANEOUS
Application: A216049 | Product #001 | TE Code: AP
Applicant: SOMERSET THERAPEUTICS LLC
Approved: Sep 19, 2024 | RLD: No | RS: No | Type: RX